FAERS Safety Report 9035334 (Version 1)
Quarter: 2013Q1

REPORT INFORMATION
  Report Type: Report from Study
  Country: US (occurrence: US)
  Receive Date: 20130129
  Receipt Date: 20130129
  Transmission Date: 20140127
  Serious: No
  Sender: FDA-Public Use
  Company Number: US-ABBOTT-12P-163-0894072-00

PATIENT
  Age: 68 Year
  Sex: Female
  Weight: 64.92 kg

DRUGS (6)
  1. HUMIRA 40 MG/ 0.8 ML PRE-FILLED SYRINGE [Suspect]
     Indication: CROHN^S DISEASE
     Route: 058
     Dates: start: 20111208, end: 20111208
  2. HUMIRA 40 MG/ 0.8 ML PRE-FILLED SYRINGE [Suspect]
     Route: 058
     Dates: start: 20111223
  3. ANTIBIOTICS [Concomitant]
     Indication: CROHN^S DISEASE
     Dates: start: 20111205, end: 20120110
  4. UNKNOWN MEDICATION [Concomitant]
     Indication: BLOOD PRESSURE
  5. LEVOTHYROXINE [Concomitant]
     Indication: HYPOTHYROIDISM
  6. VENLAFAXINE [Concomitant]
     Indication: DEPRESSION
     Route: 048

REACTIONS (5)
  - Pain in extremity [Recovered/Resolved]
  - Hypoaesthesia [Recovering/Resolving]
  - Hypoaesthesia [Recovering/Resolving]
  - Paraesthesia [Recovering/Resolving]
  - Paraesthesia [Recovering/Resolving]
